FAERS Safety Report 18039794 (Version 1)
Quarter: 2020Q3

REPORT INFORMATION
  Report Type: Spontaneous
  Country: CN (occurrence: CN)
  Receive Date: 20200717
  Receipt Date: 20200717
  Transmission Date: 20201103
  Serious: Yes (Other)
  Sender: FDA-Public Use
  Company Number: CN-009507513-2007CHN004091

PATIENT
  Age: 66 Year
  Sex: Male

DRUGS (4)
  1. VORICONAZOLE. [Suspect]
     Active Substance: VORICONAZOLE
     Indication: MOUTH ULCERATION
     Dosage: 0.3 GRAM, IVGTT Q12H
     Route: 041
     Dates: start: 20200629, end: 20200703
  2. TIGECYCLINE. [Concomitant]
     Active Substance: TIGECYCLINE
     Indication: DIARRHOEA
     Dosage: 50 MILLIGRAM, BID
     Route: 041
     Dates: start: 20200624, end: 20200706
  3. TIENAM [Suspect]
     Active Substance: CILASTATIN SODIUM\IMIPENEM
     Indication: ANTI-INFECTIVE THERAPY
     Dosage: 0.5 G IVGTT Q8H
     Route: 041
     Dates: start: 20200628, end: 20200704
  4. VORICONAZOLE. [Suspect]
     Active Substance: VORICONAZOLE
     Dosage: 0.2 GRAM, Q12H
     Route: 041
     Dates: start: 20200704, end: 20200705

REACTIONS (2)
  - Muscle twitching [Recovered/Resolved]
  - Tongue spasm [Recovered/Resolved]

NARRATIVE: CASE EVENT DATE: 20200704
